FAERS Safety Report 18107216 (Version 1)
Quarter: 2020Q3

REPORT INFORMATION
  Report Type: Spontaneous
  Country: DE (occurrence: DE)
  Receive Date: 20200803
  Receipt Date: 20200803
  Transmission Date: 20201103
  Serious: Yes (Other)
  Sender: FDA-Public Use
  Company Number: DE-PFIZER INC-2020288771

PATIENT
  Age: 42 Year
  Sex: Female
  Weight: 65 kg

DRUGS (2)
  1. CYTOTEC [Suspect]
     Active Substance: MISOPROSTOL
     Indication: CERVICAL DILATATION
     Dosage: UNK
  2. KYLEENA [Suspect]
     Active Substance: LEVONORGESTREL
     Indication: CONTRACEPTION
     Dosage: UNK
     Route: 015
     Dates: start: 20200629, end: 20200703

REACTIONS (5)
  - Uterine perforation [Unknown]
  - Complication of device insertion [Unknown]
  - Product use in unapproved indication [Unknown]
  - Procedural pain [Unknown]
  - Off label use [Unknown]

NARRATIVE: CASE EVENT DATE: 20200629
